FAERS Safety Report 25658376 (Version 1)
Quarter: 2025Q3

REPORT INFORMATION
  Report Type: Spontaneous
  Country: US (occurrence: US)
  Receive Date: 20250808
  Receipt Date: 20250808
  Transmission Date: 20251021
  Serious: No
  Sender: TAKEDA
  Company Number: US-TAKEDA-2025TUS067816

PATIENT
  Sex: Female

DRUGS (4)
  1. VYVANSE [Interacting]
     Active Substance: LISDEXAMFETAMINE DIMESYLATE
     Indication: Product used for unknown indication
  2. AUSTEDO [Interacting]
     Active Substance: DEUTETRABENAZINE
     Indication: Product used for unknown indication
     Dosage: 6 MILLIGRAM, BID
     Dates: start: 20250603
  3. AUSTEDO [Interacting]
     Active Substance: DEUTETRABENAZINE
     Dosage: 6 MILLIGRAM, BID
     Dates: start: 20250619
  4. AUSTEDO [Interacting]
     Active Substance: DEUTETRABENAZINE
     Dosage: 6 MILLIGRAM, QD
     Dates: start: 20250619

REACTIONS (7)
  - Drug interaction [Unknown]
  - Mood altered [Unknown]
  - Product dose omission issue [Unknown]
  - Tongue movement disturbance [Not Recovered/Not Resolved]
  - Drug ineffective [Unknown]
  - Drug level abnormal [Unknown]
  - Memory impairment [Unknown]
